FAERS Safety Report 24870663 (Version 1)
Quarter: 2025Q1

REPORT INFORMATION
  Report Type: Spontaneous
  Country: US (occurrence: US)
  Receive Date: 20250121
  Receipt Date: 20250121
  Transmission Date: 20250409
  Serious: Yes (Death, Hospitalization)
  Sender: JOHNSON AND JOHNSON
  Company Number: US-KENVUE-20250102750

PATIENT
  Age: 43 Year
  Sex: Female

DRUGS (4)
  1. ACETAMINOPHEN [Suspect]
     Active Substance: ACETAMINOPHEN
     Indication: Suicide attempt
  2. FENTANYL [Suspect]
     Active Substance: FENTANYL
     Indication: Suicide attempt
  3. COCAINE [Suspect]
     Active Substance: COCAINE
     Indication: Suicide attempt
  4. CANNABIS SATIVA SUBSP. INDICA TOP [Suspect]
     Active Substance: CANNABIS SATIVA SUBSP. INDICA TOP
     Indication: Suicide attempt

REACTIONS (1)
  - Toxicity to various agents [Fatal]
